FAERS Safety Report 7762441-4 (Version None)
Quarter: 2011Q3

REPORT INFORMATION
  Report Type: 
  Country: None (occurrence: None)
  Receive Date: 20110920
  Receipt Date: 20110801
  Transmission Date: 20111222
  Serious: No
  Sender: FDA-Public Use
  Company Number: US-MYLANLABS-2011S1015672

PATIENT
  Age: 81 Year
  Sex: Female

DRUGS (1)
  1. NIFEDIPINE [Suspect]
     Indication: BLOOD PRESSURE INCREASED
     Route: 048
     Dates: start: 20110721, end: 20110701

REACTIONS (3)
  - HEADACHE [None]
  - BLOOD PRESSURE FLUCTUATION [None]
  - DRUG DISPENSING ERROR [None]
